FAERS Safety Report 15200681 (Version 1)
Quarter: 2018Q3

REPORT INFORMATION
  Report Type: Spontaneous
  Country: FR (occurrence: FR)
  Receive Date: 20180726
  Receipt Date: 20180726
  Transmission Date: 20181010
  Serious: Yes (Hospitalization)
  Sender: FDA-Public Use
  Company Number: FR-TEVA-2018-FR-929808

PATIENT
  Age: 66 Year
  Sex: Male
  Weight: 116 kg

DRUGS (11)
  1. TAMSULOSINE [Concomitant]
     Active Substance: TAMSULOSIN HYDROCHLORIDE
     Dosage: 1 DOSAGE FORMS DAILY;
     Route: 048
  2. VENTOLINE [Concomitant]
     Active Substance: ALBUTEROL
     Dosage: 15 MILLIGRAM DAILY;
     Route: 055
  3. ALPRAZOLAM. [Concomitant]
     Active Substance: ALPRAZOLAM
     Dosage: .25 MILLIGRAM DAILY;
     Route: 048
  4. DILTIAZEM (CHLORHYDRATE DE) [Concomitant]
     Dosage: 120 MILLIGRAM DAILY;
     Route: 048
  5. VINORELBINE BASE [Suspect]
     Active Substance: VINORELBINE\VINORELBINE TARTRATE
     Indication: BRONCHIAL CARCINOMA
     Route: 041
     Dates: start: 20180410
  6. FUROSEMIDE. [Concomitant]
     Active Substance: FUROSEMIDE
     Dosage: 40 MILLIGRAM DAILY;
     Route: 048
  7. PARACETAMOL [Concomitant]
     Active Substance: ACETAMINOPHEN
     Route: 048
  8. CISPLATINE [Suspect]
     Active Substance: CISPLATIN
     Indication: BRONCHIAL CARCINOMA
     Dates: start: 20180410
  9. TINZAPARINE SODIQUE ((MAMMIFERE/PORC/MUQUEUSE INTESTINALE)) [Concomitant]
     Route: 058
  10. VALSARTAN. [Concomitant]
     Active Substance: VALSARTAN
     Dosage: 160 MILLIGRAM DAILY;
     Route: 048
  11. DIGOXINE [Concomitant]
     Active Substance: DIGOXIN
     Route: 041

REACTIONS (1)
  - Acute kidney injury [Recovered/Resolved]

NARRATIVE: CASE EVENT DATE: 20180419
